FAERS Safety Report 18378112 (Version 1)
Quarter: 2020Q4

REPORT INFORMATION
  Report Type: Spontaneous
  Country: IT (occurrence: IT)
  Receive Date: 20201013
  Receipt Date: 20201013
  Transmission Date: 20210114
  Serious: Yes (Other)
  Sender: FDA-Public Use
  Company Number: IT-BAYER-2020-219904

PATIENT
  Age: 25 Year
  Sex: Female

DRUGS (1)
  1. LEVONORGESTREL IUS [UNKNOWN] [Suspect]
     Active Substance: LEVONORGESTREL
     Indication: ADENOMYOSIS
     Route: 015

REACTIONS (5)
  - Adenomyosis [None]
  - Endometrial adenocarcinoma [None]
  - Off label use of device [None]
  - Device use issue [None]
  - Drug ineffective for unapproved indication [None]
